FAERS Safety Report 20460500 (Version 1)
Quarter: 2022Q1

REPORT INFORMATION
  Report Type: Report from Study
  Country: US (occurrence: US)
  Receive Date: 20220211
  Receipt Date: 20220211
  Transmission Date: 20220423
  Serious: Yes (Hospitalization)
  Sender: FDA-Public Use
  Company Number: US-JAZZ-2021-US-012581

PATIENT
  Sex: Female
  Weight: 47.9 kg

DRUGS (14)
  1. ASPARAGINASE ERWINIA CHRYSANTHEMI [Suspect]
     Active Substance: ASPARAGINASE ERWINIA CHRYSANTHEMI
     Indication: Acute lymphocytic leukaemia
     Dosage: 52 MILLIGRAM, 3XWEEKLY PER 2W COURSE
     Route: 030
     Dates: start: 20201118, end: 20201130
  2. ASPARAGINASE ERWINIA CHRYSANTHEMI [Suspect]
     Active Substance: ASPARAGINASE ERWINIA CHRYSANTHEMI
     Dosage: UNK, 3XWEEKLY PER 2W COURSE
     Route: 030
     Dates: start: 20210324, end: 20210324
  3. ASPARAGINASE ERWINIA CHRYSANTHEMI [Suspect]
     Active Substance: ASPARAGINASE ERWINIA CHRYSANTHEMI
     Dosage: UNK, 3XWEEKLY PER 2W COURSE
     Route: 030
     Dates: start: 20210326, end: 20210405
  4. ASPARAGINASE ERWINIA CHRYSANTHEMI [Suspect]
     Active Substance: ASPARAGINASE ERWINIA CHRYSANTHEMI
     Dosage: 54 MILLIGRAM, 3XWEEKLY PER 2W COURSE
     Route: 030
     Dates: end: 20210702
  5. PROPOFOL [Concomitant]
     Active Substance: PROPOFOL
     Dosage: 350 MCG/KG/MIN, PRN FOR SEDATION
     Route: 042
     Dates: start: 20210630
  6. ONDANSETRON [Concomitant]
     Active Substance: ONDANSETRON
     Dosage: 15.2 MILLIGRAM, SINGLE
     Route: 042
     Dates: start: 20210630, end: 20210630
  7. ONDANSETRON [Concomitant]
     Active Substance: ONDANSETRON
     Dosage: 7.6 MILLIGRAM, SINGLE
     Route: 042
     Dates: start: 20210702, end: 20210702
  8. ONDANSETRON [Concomitant]
     Active Substance: ONDANSETRON
     Dosage: 8 MILLIGRAM, TID PRN
     Route: 048
     Dates: start: 20210702
  9. METHOTREXATE [Suspect]
     Active Substance: METHOTREXATE
     Dosage: 350 MILLIGRAM, SINGLE
     Route: 042
     Dates: start: 20210630, end: 20210630
  10. VINCRISTINE [Concomitant]
     Active Substance: VINCRISTINE
     Dosage: 2 MILLIGRAM, SINGLE
     Route: 042
     Dates: start: 20210630, end: 20210630
  11. CYTARABINE [Concomitant]
     Active Substance: CYTARABINE
     Dosage: 70 MILLIGRAM, SINGLE
     Route: 037
     Dates: start: 20210630, end: 20210630
  12. LACTATED RINGERS SOLUTION [Concomitant]
     Active Substance: CALCIUM CHLORIDE\POTASSIUM CHLORIDE\SODIUM CHLORIDE\SODIUM LACTATE
     Dosage: UNK, PRN DURING SEDATION
     Route: 042
     Dates: start: 20210630, end: 20210630
  13. SODIUM CHLORIDE [Concomitant]
     Active Substance: SODIUM CHLORIDE
     Dosage: 500 MILLILITER, SINGLE
     Route: 042
     Dates: start: 20210630, end: 20210630
  14. OLANZAPINE [Concomitant]
     Active Substance: OLANZAPINE
     Dosage: 2.5 MILLIGRAM, AT BEDTIME
     Route: 048
     Dates: start: 20210407

REACTIONS (7)
  - Nausea [Recovered/Resolved]
  - Vomiting [Recovered/Resolved]
  - Pharyngeal inflammation [Recovered/Resolved]
  - Acute kidney injury [Recovered/Resolved]
  - Anal inflammation [Recovered/Resolved]
  - Enterocolitis infectious [Recovered/Resolved]
  - Klebsiella infection [Recovered/Resolved]

NARRATIVE: CASE EVENT DATE: 20210705
